FAERS Safety Report 17540039 (Version 1)
Quarter: 2020Q1

REPORT INFORMATION
  Report Type: Spontaneous
  Country: US (occurrence: US)
  Receive Date: 20200313
  Receipt Date: 20200313
  Transmission Date: 20200409
  Serious: No
  Sender: FDA-Public Use
  Company Number: US-SA-2020SA063928

PATIENT
  Age: 72 Year
  Sex: Female

DRUGS (1)
  1. ZANTAC [Suspect]
     Active Substance: RANITIDINE HYDROCHLORIDE
     Dosage: 150 MG, BID
     Route: 065

REACTIONS (8)
  - Lip blister [Unknown]
  - Tongue discomfort [Unknown]
  - Gastrooesophageal reflux disease [Unknown]
  - Tongue blistering [Unknown]
  - Lip disorder [Unknown]
  - Hyperchlorhydria [Unknown]
  - Oral discomfort [Unknown]
  - Dyspepsia [Unknown]
